FAERS Safety Report 6534490-5 (Version None)
Quarter: 2010Q1

REPORT INFORMATION
  Report Type: 
  Country: None (occurrence: None)
  Receive Date: 20100112
  Receipt Date: 20091231
  Transmission Date: 20100710
  Serious: Yes (Death, Life-Threatening, Hospitalization)
  Sender: FDA-Public Use
  Company Number: US-PFIZER INC-2006038249

PATIENT
  Sex: Male
  Weight: 82.6 kg

DRUGS (11)
  1. SUNITINIB MALATE [Suspect]
     Indication: RENAL CELL CARCINOMA
     Dosage: 50 MG, 1X/DAY
     Route: 048
     Dates: start: 20051128, end: 20060315
  2. TOPROL-XL [Concomitant]
     Dosage: UNK
     Route: 048
     Dates: start: 20040101, end: 20060317
  3. HYDROCHLOROTHIAZIDE [Concomitant]
     Dosage: UNK
     Route: 048
     Dates: start: 20040101, end: 20060317
  4. LIPITOR [Concomitant]
     Dosage: UNK
     Route: 048
     Dates: start: 19950101, end: 20060317
  5. CENTRUM [Concomitant]
     Dosage: UNK
     Route: 048
     Dates: start: 19950101, end: 20060317
  6. VITAMIN C [Concomitant]
     Dosage: UNK
     Route: 048
     Dates: start: 19950101, end: 20060317
  7. ALL OTHER THERAPEUTIC PRODUCTS [Concomitant]
     Dosage: UNK
     Route: 048
     Dates: start: 20050101, end: 20060317
  8. ZANTAC [Concomitant]
     Dosage: UNK
     Route: 048
     Dates: start: 20051214, end: 20060317
  9. NEXIUM [Concomitant]
     Dosage: UNK
     Route: 048
     Dates: start: 20051220, end: 20060317
  10. ARANESP [Concomitant]
     Indication: ANAEMIA
     Dosage: UNK
     Route: 058
     Dates: start: 20060221, end: 20060221
  11. HYDROCODONE [Concomitant]
     Dosage: UNK
     Route: 048
     Dates: start: 20050101, end: 20060317

REACTIONS (6)
  - DIARRHOEA [None]
  - DISSEMINATED INTRAVASCULAR COAGULATION [None]
  - HEPATIC FAILURE [None]
  - RENAL FAILURE ACUTE [None]
  - THROMBOCYTOPENIA [None]
  - VOMITING [None]
